FAERS Safety Report 7487508-X (Version None)
Quarter: 2011Q2

REPORT INFORMATION
  Report Type: 
  Country: None (occurrence: None)
  Receive Date: 20110518
  Receipt Date: 20110504
  Transmission Date: 20111010
  Serious: Yes (Hospitalization)
  Sender: FDA-Public Use
  Company Number: US-JNJFOC-20110502407

PATIENT
  Age: 64 Year
  Sex: Female

DRUGS (6)
  1. SOLU-MEDROL [Suspect]
     Indication: INFUSION RELATED REACTION
     Dates: start: 20110323
  2. BENADRYL [Concomitant]
     Indication: PREMEDICATION
  3. REMICADE [Suspect]
     Indication: PSORIATIC ARTHROPATHY
     Dosage: FOR SEVERAL YEARS
     Route: 042
  4. REMICADE [Suspect]
     Route: 042
     Dates: start: 20110323
  5. ASTHMA INHALER [Concomitant]
     Indication: ASTHMA
     Route: 055
  6. ACETAMINOPHEN [Concomitant]
     Indication: PREMEDICATION
     Dosage: 2 EXTRA-STRENGTH

REACTIONS (5)
  - INFUSION RELATED REACTION [None]
  - MEDICAL DEVICE COMPLICATION [None]
  - CONFUSIONAL STATE [None]
  - CHEST PAIN [None]
  - DYSPNOEA [None]
